FAERS Safety Report 9830974 (Version 1)
Quarter: 2014Q1

REPORT INFORMATION
  Report Type: Report from Study
  Country: BR (occurrence: BR)
  Receive Date: 20140120
  Receipt Date: 20140120
  Transmission Date: 20141002
  Serious: Yes (Other)
  Sender: FDA-Public Use
  Company Number: PHHY2014BR005846

PATIENT
  Sex: Female
  Weight: 76 kg

DRUGS (5)
  1. DIOVAN [Suspect]
     Indication: HYPERTENSION
     Dosage: 1 DF (160MG) DAILY
     Route: 048
  2. DIOVAN [Suspect]
     Dosage: 80 MG TABLET, 1 OR 2 DEPENDING OF THE BLOOD PRESSURE OSCILLATION
     Route: 048
  3. DIOVAN [Suspect]
     Dosage: 0.5 DF (160MG), PRN (WHENEVER 80MG NOT AVAILABLE)
  4. CALCIUM [Concomitant]
  5. VITAMAN [Concomitant]

REACTIONS (10)
  - Osteoporosis [Recovering/Resolving]
  - Haemorrhoids [Recovering/Resolving]
  - Dysentery [Recovering/Resolving]
  - Abnormal weight gain [Recovering/Resolving]
  - Thyroid disorder [Recovering/Resolving]
  - Blood glucose abnormal [Recovering/Resolving]
  - Blood triglycerides abnormal [Recovering/Resolving]
  - Cardiac disorder [Recovering/Resolving]
  - Blood pressure fluctuation [Recovering/Resolving]
  - Wrong technique in drug usage process [Unknown]
